FAERS Safety Report 9217000 (Version 3)
Quarter: 2013Q3

REPORT INFORMATION
  Report Type: Spontaneous
  Country: US (occurrence: None)
  Receive Date: 20130403
  Receipt Date: 20130929
  Transmission Date: 20140515
  Serious: Yes (Other)
  Sender: FDA-Public Use
  Company Number: JPI-P-030614

PATIENT
  Age: 18 Year
  Sex: Male
  Weight: 157.85 kg

DRUGS (3)
  1. XYREM [Suspect]
     Indication: NARCOLEPSY
     Route: 048
     Dates: start: 200803
  2. XYREM [Suspect]
     Indication: SOMNOLENCE
     Route: 048
     Dates: start: 200803
  3. LISDEXAMFETAMINE DIMESYLATE [Concomitant]

REACTIONS (2)
  - Sleep apnoea syndrome [None]
  - Hypertension [None]
